FAERS Safety Report 6223275-5 (Version None)
Quarter: 2009Q2

REPORT INFORMATION
  Report Type: 
  Country: None (occurrence: None)
  Receive Date: 20090611
  Receipt Date: 20090601
  Transmission Date: 20091009
  Serious: No
  Sender: FDA-Public Use
  Company Number: US-ELI_LILLY_AND_COMPANY-US200904002787

PATIENT
  Sex: Male
  Weight: 103.86 kg

DRUGS (7)
  1. HUMALOG [Suspect]
     Indication: DIABETES MELLITUS
     Dosage: 10 U, UNK
  2. HUMALOG [Suspect]
     Dosage: 20 U, UNK
  3. HUMALOG [Suspect]
     Dosage: 10 U, UNK
  4. HUMALOG [Suspect]
     Dosage: 20 U, UNK
  5. HUMALOG [Suspect]
     Dosage: 10 U, UNK
  6. HUMALOG [Suspect]
     Dosage: 20 U, UNK
  7. LEVEMIR [Concomitant]
     Indication: DIABETES MELLITUS

REACTIONS (4)
  - BLOOD GLUCOSE DECREASED [None]
  - BLOOD GLUCOSE INCREASED [None]
  - DRUG DISPENSING ERROR [None]
  - INCORRECT DOSE ADMINISTERED [None]
